FAERS Safety Report 4496285-6 (Version None)
Quarter: 2004Q3

REPORT INFORMATION
  Report Type: 
  Country: None (occurrence: None)
  Receive Date: 20040921
  Receipt Date: 20040225
  Transmission Date: 20050211
  Serious: Yes (Death, Other)
  Sender: FDA-Public Use
  Company Number: 163-20785-04020706 (0)

PATIENT
  Age: 69 Year
  Sex: Female
  Weight: 46.6 kg

DRUGS (6)
  1. THALOMID [Suspect]
     Indication: METASTASES TO CENTRAL NERVOUS SYSTEM
     Dosage: 200 MG, QHS, ORAL
     Route: 048
     Dates: start: 20040107, end: 20040112
  2. DEXAMETHASONE [Concomitant]
  3. LORAZEPAM [Concomitant]
  4. MARINOL [Concomitant]
  5. NEXIUNM (ESOMEPRAZOLE) [Concomitant]
  6. ULTRACET (ULTRACET) [Concomitant]

REACTIONS (6)
  - DEATH [None]
  - DISEASE PROGRESSION [None]
  - HEPATIC FAILURE [None]
  - METASTASES TO ADRENALS [None]
  - METASTASES TO LIVER [None]
  - RASH [None]
